FAERS Safety Report 7828214-9 (Version None)
Quarter: 2011Q4

REPORT INFORMATION
  Report Type: 
  Country: None (occurrence: None)
  Receive Date: 20111018
  Receipt Date: 20111003
  Transmission Date: 20120403
  Serious: Yes (Hospitalization)
  Sender: FDA-Public Use
  Company Number: TPA2011A06445

PATIENT
  Sex: Female

DRUGS (1)
  1. EDARBI [Suspect]
     Dosage: 80 MG

REACTIONS (1)
  - RENAL FAILURE [None]
